FAERS Safety Report 7262714-8 (Version None)
Quarter: 2011Q1

REPORT INFORMATION
  Report Type: 
  Country: None (occurrence: None)
  Receive Date: 20110130
  Receipt Date: 20100928
  Transmission Date: 20110831
  Serious: Yes (Hospitalization)
  Sender: FDA-Public Use
  Company Number: US-ABBOTT-10P-163-0673881-00

PATIENT
  Sex: Male
  Weight: 86.714 kg

DRUGS (3)
  1. HUMULIN 70/30 [Concomitant]
     Indication: DIABETES MELLITUS
     Dosage: SLIDING SCALE
  2. HUMIRA [Suspect]
     Indication: RHEUMATOID ARTHRITIS
     Dates: start: 20090101
  3. VENTOLIN [Concomitant]
     Indication: ASTHMA

REACTIONS (3)
  - INJECTION SITE PAIN [None]
  - CYSTITIS [None]
  - DEVICE MALFUNCTION [None]
